FAERS Safety Report 7700023-0 (Version None)
Quarter: 2011Q3

REPORT INFORMATION
  Report Type: 
  Country: None (occurrence: None)
  Receive Date: 20110822
  Receipt Date: 20110808
  Transmission Date: 20111222
  Serious: Yes (Hospitalization, Other)
  Sender: FDA-Public Use
  Company Number: CR-ELI_LILLY_AND_COMPANY-CR201108003973

PATIENT
  Age: 25 Year
  Sex: Female

DRUGS (6)
  1. SERTRALINE HYDROCHLORIDE [Concomitant]
  2. LYRICA [Concomitant]
  3. OLANZAPINE [Suspect]
     Indication: MIGRAINE
     Dosage: 10 MG, BID
     Route: 030
  4. VALPROATE SODIUM [Concomitant]
     Dosage: 500 MG, QD
  5. DULOXETIME HYDROCHLORIDE [Suspect]
     Dosage: 60 MG, QD
  6. OLANZAPINE [Suspect]
     Dosage: 10 MG, QD
     Route: 048

REACTIONS (3)
  - OFF LABEL USE [None]
  - MIGRAINE [None]
  - WEIGHT INCREASED [None]
